FAERS Safety Report 15501881 (Version 1)
Quarter: 2018Q4

REPORT INFORMATION
  Report Type: Spontaneous
  Country: US (occurrence: US)
  Receive Date: 20181015
  Receipt Date: 20181015
  Transmission Date: 20190205
  Serious: No
  Sender: FDA-Public Use
  Company Number: US-AMGEN-USASP2018032292

PATIENT
  Age: 69 Year
  Sex: Female
  Weight: 81.63 kg

DRUGS (2)
  1. PROCRIT [Suspect]
     Active Substance: ERYTHROPOIETIN
     Indication: PLATELET COUNT DECREASED
     Dosage: UNK
     Route: 058
     Dates: start: 20180222
  2. PROCRIT [Suspect]
     Active Substance: ERYTHROPOIETIN
     Indication: RED BLOOD CELL COUNT DECREASED

REACTIONS (1)
  - Nausea [Not Recovered/Not Resolved]

NARRATIVE: CASE EVENT DATE: 201802
